FAERS Safety Report 8427514-1 (Version None)
Quarter: 2012Q2

REPORT INFORMATION
  Report Type: 
  Country: None (occurrence: None)
  Receive Date: 20120611
  Receipt Date: 20120530
  Transmission Date: 20120825
  Serious: Yes (Other)
  Sender: FDA-Public Use
  Company Number: US-BRISTOL-MYERS SQUIBB COMPANY-16655532

PATIENT

DRUGS (1)
  1. ABILIFY [Suspect]
     Route: 065

REACTIONS (10)
  - CARDIOVASCULAR DISORDER [None]
  - CEREBROVASCULAR DISORDER [None]
  - FATIGUE [None]
  - OFF LABEL USE [None]
  - SEDATION [None]
  - INCREASED APPETITE [None]
  - WEIGHT INCREASED [None]
  - URINARY TRACT DISORDER [None]
  - EXTRAPYRAMIDAL DISORDER [None]
  - AKATHISIA [None]
